FAERS Safety Report 5410122-4 (Version None)
Quarter: 2007Q3

REPORT INFORMATION
  Report Type: 
  Country: None (occurrence: None)
  Receive Date: 20070809
  Receipt Date: 20070730
  Transmission Date: 20080115
  Serious: Yes (Other)
  Sender: FDA-Public Use
  Company Number: US-SHR-US-2007-020126

PATIENT
  Age: 43 Year
  Sex: Female
  Weight: 55.3 kg

DRUGS (4)
  1. BETASERON [Suspect]
     Dosage: UNK, EVERY 2D
     Route: 058
     Dates: start: 20020720, end: 20060201
  2. BETASERON [Suspect]
     Dosage: UNK, EVERY 2D
     Route: 058
     Dates: start: 20060901, end: 20070201
  3. BETASERON [Suspect]
     Dosage: 8 MIU, EVERY 2D
     Route: 058
     Dates: start: 20070401, end: 20070523
  4. BETASERON [Suspect]
     Dosage: 8 MIU, EVERY 2D
     Route: 058
     Dates: start: 20070721

REACTIONS (6)
  - ABDOMINAL NEOPLASM [None]
  - DEPRESSION [None]
  - GALLBLADDER DISORDER [None]
  - HAEMATEMESIS [None]
  - PAIN [None]
  - POST PROCEDURAL COMPLICATION [None]
